FAERS Safety Report 9685118 (Version 2)
Quarter: 2014Q1

REPORT INFORMATION
  Report Type: Spontaneous
  Country: US (occurrence: US)
  Receive Date: 20131113
  Receipt Date: 20140203
  Transmission Date: 20141002
  Serious: No
  Sender: FDA-Public Use
  Company Number: US-B.I. PHARMACEUTICALS,INC./RIDGEFIELD-2013-BI-35669BP

PATIENT
  Age: 62 Year
  Sex: Male
  Weight: 90 kg

DRUGS (5)
  1. TWYNSTA [Suspect]
     Indication: HYPERTENSION
     Dosage: STRENGTH: 80MG / 5MG; DAILY DOSE: 80MG/5MG
     Route: 048
     Dates: start: 2010
  2. FEXOFENADINE [Concomitant]
     Route: 048
  3. NASONEX [Concomitant]
     Dosage: (NASAL SPRAY)
     Route: 045
  4. TRAVATAN Z EYE DROPS [Concomitant]
  5. NEXIUM [Concomitant]
     Route: 048

REACTIONS (1)
  - Muscle spasms [Not Recovered/Not Resolved]
